FAERS Safety Report 8242409 (Version 2)
Quarter: 2014Q2

REPORT INFORMATION
  Report Type: Spontaneous
  Country: IT (occurrence: IT)
  Receive Date: 20111114
  Receipt Date: 20140411
  Transmission Date: 20141212
  Serious: Yes (Other)
  Sender: FDA-Public Use
  Company Number: IT-RANBAXY-2011US-50202

PATIENT
  Age: 32 Year
  Sex: Male

DRUGS (3)
  1. TOPIRAMATE [Suspect]
     Indication: PRODUCT USED FOR UNKNOWN INDICATION
     Dosage: 350 MG, DAILY
     Route: 065
  2. TOPIRAMATE [Suspect]
     Indication: TEMPORAL LOBE EPILEPSY
  3. TOPIRAMATE [Suspect]
     Indication: COMPLEX PARTIAL SEIZURES

REACTIONS (1)
  - Erectile dysfunction [Recovered/Resolved]
